FAERS Safety Report 19412288 (Version 1)
Quarter: 2021Q2

REPORT INFORMATION
  Report Type: Report from Study
  Country: IE (occurrence: IE)
  Receive Date: 20210614
  Receipt Date: 20210614
  Transmission Date: 20210717
  Serious: Yes (Other)
  Sender: FDA-Public Use
  Company Number: NVSC2021IE029531

PATIENT
  Sex: Female

DRUGS (1)
  1. VOTRIENT [Suspect]
     Active Substance: PAZOPANIB HYDROCHLORIDE
     Indication: METASTATIC RENAL CELL CARCINOMA
     Dosage: 800 MG
     Route: 065
     Dates: start: 20210106

REACTIONS (8)
  - Gingival pain [Unknown]
  - Fatigue [Not Recovered/Not Resolved]
  - Toothache [Unknown]
  - Diarrhoea [Unknown]
  - Gout [Unknown]
  - Constipation [Unknown]
  - Weight decreased [Unknown]
  - Neuropathy peripheral [Unknown]
